FAERS Safety Report 8404237-6 (Version None)
Quarter: 2012Q2

REPORT INFORMATION
  Report Type: 
  Country: None (occurrence: None)
  Receive Date: 20120601
  Receipt Date: 20120524
  Transmission Date: 20120825
  Serious: Yes (Other)
  Sender: FDA-Public Use
  Company Number: US-MPIJNJ-2012-03712

PATIENT

DRUGS (7)
  1. VELCADE [Suspect]
     Dosage: 0.7 MG/M2, CYCLIC
     Route: 040
  2. VELCADE [Suspect]
     Dosage: 1.0 MG/M2, CYCLIC
     Route: 042
  3. ACYCLOVIR [Concomitant]
  4. MELPHALAN HYDROCHLORIDE [Suspect]
     Indication: MULTIPLE MYELOMA
     Dosage: 100 MG/M2, CYCLIC
     Route: 042
  5. ACYCLOVIR [Concomitant]
     Indication: PROPHYLAXIS
     Dosage: UNK
     Route: 048
  6. NEUPOGEN [Suspect]
     Indication: MULTIPLE MYELOMA
     Dosage: 20 UG/KG, CYCLIC
     Route: 042
  7. VELCADE [Suspect]
     Indication: MULTIPLE MYELOMA
     Dosage: 1.3 MG/M2, CYCLIC
     Route: 042

REACTIONS (1)
  - PULMONARY ALVEOLAR HAEMORRHAGE [None]
